FAERS Safety Report 5179882-4 (Version None)
Quarter: 2006Q4

REPORT INFORMATION
  Report Type: 
  Country: None (occurrence: None)
  Receive Date: 20061212
  Receipt Date: 20061201
  Transmission Date: 20070319
  Serious: Yes (Disabling)
  Sender: FDA-Public Use
  Company Number: 2006148272

PATIENT
  Age: 53 Year
  Sex: Female

DRUGS (5)
  1. ATORVASTATIN CALCIUM [Suspect]
     Indication: HYPERCHOLESTEROLAEMIA
     Dosage: 40 MG (40 MG, 1 IN 1 D)
  2. FLUINDIONE [Concomitant]
  3. RAMIPRIL [Concomitant]
  4. ISOSORBIDE MONONITRATE [Concomitant]
  5. ATENOLOL [Concomitant]

REACTIONS (3)
  - BLOOD CHOLESTEROL ABNORMAL [None]
  - DISORIENTATION [None]
  - MEMORY IMPAIRMENT [None]
